FAERS Safety Report 10676428 (Version 3)
Quarter: 2015Q1

REPORT INFORMATION
  Report Type: Spontaneous
  Country: IS (occurrence: IS)
  Receive Date: 20141226
  Receipt Date: 20150108
  Transmission Date: 20150720
  Serious: No
  Sender: FDA-Public Use
  Company Number: IS-BAYER-2014-034416

PATIENT
  Age: 42 Year
  Sex: Female
  Weight: 84 kg

DRUGS (2)
  1. MIRENA [Suspect]
     Active Substance: LEVONORGESTREL
     Indication: CONTRACEPTION
  2. MIRENA [Suspect]
     Active Substance: LEVONORGESTREL
     Indication: CONTRACEPTION
     Dosage: 20 MCG/24HR, CONT
     Route: 015
     Dates: start: 201101, end: 201312

REACTIONS (4)
  - Menorrhagia [None]
  - Pregnancy with contraceptive device [None]
  - Drug ineffective [None]
  - Device expulsion [Recovered/Resolved]

NARRATIVE: CASE EVENT DATE: 201312
